FAERS Safety Report 20869166 (Version 3)
Quarter: 2022Q3

REPORT INFORMATION
  Report Type: Spontaneous
  Country: SE (occurrence: SE)
  Receive Date: 20220524
  Receipt Date: 20220708
  Transmission Date: 20221026
  Serious: Yes (Hospitalization, Other)
  Sender: FDA-Public Use
  Company Number: SE-MNA-22-000010

PATIENT
  Age: 69 Year
  Sex: Female
  Weight: 77.1 kg

DRUGS (15)
  1. KEYTRUDA [Suspect]
     Active Substance: PEMBROLIZUMAB
     Indication: Ovarian cancer
     Dosage: 200 MILLIGRAM, 3W, INTRAVENOUSLY (REPORTED ALSO AS ORALLY)
     Route: 048
     Dates: start: 20220119, end: 20220413
  2. CEBPA-51 FREE ACID [Suspect]
     Active Substance: CEBPA-51 FREE ACID
     Indication: Ovarian cancer
     Dosage: 250 MILLILITER, WEEKLY
     Route: 042
     Dates: start: 20220118, end: 20220420
  3. PYRIDOXINE [Concomitant]
     Active Substance: PYRIDOXINE
     Indication: Prophylaxis
     Dosage: UNK
     Dates: start: 20210525
  4. ELIQUIS [Concomitant]
     Active Substance: APIXABAN
     Indication: Thrombosis
     Dosage: UNK
     Dates: start: 20201216
  5. CANDESARTAN [Concomitant]
     Active Substance: CANDESARTAN
     Indication: Hypertension
     Dosage: UNK
     Dates: start: 20200728
  6. SIMVASTATIN [Concomitant]
     Active Substance: SIMVASTATIN
     Indication: Dyslipidaemia
     Dosage: UNK
     Dates: start: 20170322
  7. LEVOTHYROXINE SODIUM [Concomitant]
     Active Substance: LEVOTHYROXINE SODIUM
     Indication: Hypothyroidism
     Dosage: UNK
     Dates: start: 20161115
  8. OXYCONTIN [Concomitant]
     Active Substance: OXYCODONE HYDROCHLORIDE
     Indication: Prophylaxis
     Dosage: UNK
     Dates: start: 20210702
  9. MOVICOL [Concomitant]
     Active Substance: POLYETHYLENE GLYCOL 3350\POTASSIUM CHLORIDE\SODIUM BICARBONATE\SODIUM CHLORIDE
     Indication: Prophylaxis
     Dosage: UNK
     Dates: start: 20210525
  10. HERBALS\KARAYA GUM [Concomitant]
     Active Substance: HERBALS\KARAYA GUM
     Indication: Prophylaxis
     Dosage: UNK
     Dates: start: 20210223
  11. VALACYCLOVIR HYDROCHLORIDE [Concomitant]
     Active Substance: VALACYCLOVIR HYDROCHLORIDE
     Indication: Herpes virus infection
     Dosage: UNK
     Dates: start: 20191018
  12. DIKLOFENAK [DICLOFENAC] [Concomitant]
     Indication: Cholecystitis
     Dosage: UNK
     Dates: start: 20190605
  13. PHENOBARBITAL [Concomitant]
     Active Substance: PHENOBARBITAL
     Indication: Cholecystitis
     Dosage: UNK
     Dates: start: 20190605
  14. OXAZEPAM [Concomitant]
     Active Substance: OXAZEPAM
     Indication: Anxiety
     Dosage: UNK
     Dates: start: 20191125
  15. IMOVANE [Concomitant]
     Active Substance: ZOPICLONE
     Indication: Anxiety
     Dosage: UNK
     Dates: start: 20190604

REACTIONS (7)
  - Sepsis [Recovered/Resolved]
  - Renal failure [Recovered/Resolved]
  - Hyponatraemia [Recovered/Resolved]
  - Nasopharyngitis [Recovered/Resolved]
  - Hyponatraemia [Unknown]
  - Hyponatraemia [Unknown]
  - Product use issue [Unknown]

NARRATIVE: CASE EVENT DATE: 20220119
